FAERS Safety Report 9580738 (Version 2)
Quarter: 2013Q4

REPORT INFORMATION
  Report Type: Report from Study
  Country: US (occurrence: US)
  Receive Date: 20131002
  Receipt Date: 20131101
  Transmission Date: 20140711
  Serious: Yes (Other)
  Sender: FDA-Public Use
  Company Number: US-US-EMD SERONO, INC.-7240301

PATIENT
  Age: 11 Year
  Sex: Male
  Weight: 49 kg

DRUGS (5)
  1. SAIZEN [(SOMATROPIN (RDNA ORIGIN) FOR INJECTION)] [Suspect]
     Indication: HYPOPITUITARISM
     Route: 058
     Dates: start: 200710
  2. SAIZEN [(SOMATROPIN (RDNA ORIGIN) FOR INJECTION)] [Suspect]
     Indication: GROWTH HORMONE DEFICIENCY
     Route: 058
  3. SAIZEN [(SOMATROPIN (RDNA ORIGIN) FOR INJECTION)] [Suspect]
     Route: 058
  4. LUPRON [Concomitant]
     Indication: PRODUCT USED FOR UNKNOWN INDICATION
     Dates: start: 201002, end: 201108
  5. SYNTHROID [Concomitant]
     Indication: PRIMARY HYPOTHYROIDISM
     Dosage: INCREASED DOSE TO 75 MICROGRAM.

REACTIONS (2)
  - Appendicitis [Recovered/Resolved]
  - Vitamin D deficiency [Unknown]
